FAERS Safety Report 7636296 (Version 5)
Quarter: 2013Q1

REPORT INFORMATION
  Report Type: Spontaneous
  Country: US (occurrence: US)
  Receive Date: 20101021
  Receipt Date: 20130207
  Transmission Date: 20140127
  Serious: Yes (Hospitalization, Other)
  Sender: FDA-Public Use
  Company Number: US-ROCHE-576698

PATIENT
  Age: 17 Year
  Sex: Female
  Weight: 72.6 kg

DRUGS (4)
  1. ACCUTANE [Suspect]
     Indication: ACNE CYSTIC
     Dosage: STRENGTH: 40 MG AND 20 MG
     Route: 065
     Dates: start: 20030206, end: 20030220
  2. ACCUTANE [Suspect]
     Route: 065
     Dates: start: 20030221, end: 20030307
  3. ACCUTANE [Suspect]
     Route: 065
     Dates: start: 20030308, end: 20030322
  4. ACCUTANE [Suspect]
     Route: 065
     Dates: start: 20030323, end: 200306

REACTIONS (8)
  - Colitis ulcerative [Unknown]
  - Precancerous cells present [Unknown]
  - Crohn^s disease [Unknown]
  - Inflammatory bowel disease [Unknown]
  - Oral disorder [Unknown]
  - Asteatosis [Unknown]
  - Dry skin [Unknown]
  - Dermatitis [Unknown]
